FAERS Safety Report 25999935 (Version 1)
Quarter: 2025Q4

REPORT INFORMATION
  Report Type: Spontaneous
  Country: US (occurrence: None)
  Receive Date: 20251104
  Receipt Date: 20251104
  Transmission Date: 20260117
  Serious: Yes (Death)
  Sender: FDA-CTU
  Company Number: None

PATIENT
  Age: 85 Year
  Sex: Male

DRUGS (1)
  1. OFEV [Suspect]
     Active Substance: NINTEDANIB
     Indication: Interstitial lung disease
     Dosage: 150MG BID ORAL
     Route: 048
     Dates: start: 20250102, end: 20251026

REACTIONS (4)
  - Syncope [None]
  - Fall [None]
  - Skin laceration [None]
  - Haemorrhage intracranial [None]

NARRATIVE: CASE EVENT DATE: 20251026
